FAERS Safety Report 25372250 (Version 2)
Quarter: 2025Q3

REPORT INFORMATION
  Report Type: Spontaneous
  Country: US (occurrence: US)
  Receive Date: 20250529
  Receipt Date: 20250716
  Transmission Date: 20251021
  Serious: Yes (Other)
  Sender: COOPERSURGICAL
  Company Number: US-COOPERSURGICAL, INC.-2025CPS004231

PATIENT
  Age: 27 Year
  Sex: Female
  Weight: 90.249 kg

DRUGS (1)
  1. PARAGARD T 380A [Suspect]
     Active Substance: COPPER
     Route: 015
     Dates: start: 20070101

REACTIONS (23)
  - Polycystic ovarian syndrome [Not Recovered/Not Resolved]
  - Ovarian cyst ruptured [Unknown]
  - Hysterectomy [Recovered/Resolved]
  - Reproductive complication associated with device [Not Recovered/Not Resolved]
  - Device breakage [Recovered/Resolved]
  - Foreign body in reproductive tract [Recovered/Resolved]
  - Complication of device removal [Recovered/Resolved]
  - Embedded device [Recovered/Resolved]
  - Inflammation [Unknown]
  - Emotional disorder [Unknown]
  - Endometriosis [Unknown]
  - Hormone level abnormal [Unknown]
  - Pain [Recovered/Resolved]
  - Dysmenorrhoea [Recovered/Resolved]
  - Menstruation irregular [Recovered/Resolved]
  - Heavy menstrual bleeding [Recovered/Resolved]
  - Amenorrhoea [Recovered/Resolved]
  - Muscle spasms [Unknown]
  - Abdominal distension [Recovered/Resolved]
  - Bacterial vaginosis [Recovered/Resolved]
  - Pelvic pain [Unknown]
  - Abnormal uterine bleeding [Recovered/Resolved]
  - Unevaluable event [Unknown]

NARRATIVE: CASE EVENT DATE: 20080101
